FAERS Safety Report 8809923 (Version 2)
Quarter: 2012Q4

REPORT INFORMATION
  Report Type: Report from Study
  Country: HU (occurrence: HU)
  Receive Date: 20120926
  Receipt Date: 20121002
  Transmission Date: 20130627
  Serious: Yes (Death, Hospitalization, Other)
  Sender: FDA-Public Use
  Company Number: HU-B.I. PHARMACEUTICALS,INC./RIDGEFIELD-2012-AP-00603AP

PATIENT
  Age: 78 Year
  Sex: Male
  Weight: 67 kg

DRUGS (14)
  1. SPIRIVA [Suspect]
     Indication: CHRONIC OBSTRUCTIVE PULMONARY DISEASE
     Dosage: 2.5 micg, morning:2
     Route: 055
     Dates: start: 20090512, end: 20120708
  2. FOSTER [Concomitant]
     Indication: CHRONIC OBSTRUCTIVE PULMONARY DISEASE
     Dosage: 100 micg, 2x2 puffs
     Route: 055
     Dates: start: 20120214, end: 20120708
  3. ALVESCO [Concomitant]
     Indication: CHRONIC OBSTRUCTIVE PULMONARY DISEASE
     Dosage: 160 micg, evening: 2 puffs
     Route: 055
     Dates: start: 20120314, end: 20120314
  4. RETAFYLLIN [Concomitant]
     Indication: CHRONIC OBSTRUCTIVE PULMONARY DISEASE
     Dosage: 200 mg, 2x1
     Route: 048
     Dates: start: 20090512, end: 20120708
  5. BERODUAL [Concomitant]
     Indication: CHRONIC OBSTRUCTIVE PULMONARY DISEASE
     Dosage: if needed
     Route: 055
     Dates: start: 20090512, end: 20120708
  6. FUROSEMID+KALDYUM [Concomitant]
  7. LAEVOLAC [Concomitant]
  8. SERETIDE [Concomitant]
  9. ASA [Concomitant]
  10. DIGIMERCK [Concomitant]
  11. MILURIT [Concomitant]
  12. NOLPAZA [Concomitant]
  13. ISOPTIN SR [Concomitant]
  14. FRONTIN [Concomitant]

REACTIONS (5)
  - Respiratory tract inflammation [Fatal]
  - Myocardial infarction [Unknown]
  - Delirium [Unknown]
  - Adenoma benign [Unknown]
  - Pneumonia [Unknown]
